FAERS Safety Report 25051947 (Version 1)
Quarter: 2025Q1

REPORT INFORMATION
  Report Type: Spontaneous
  Country: US (occurrence: US)
  Receive Date: 20250307
  Receipt Date: 20250307
  Transmission Date: 20250409
  Serious: No
  Sender: MYLAN
  Company Number: US-MYLANLABS-2025M1016791

PATIENT
  Weight: 68.027 kg

DRUGS (1)
  1. LEVOTHYROXINE SODIUM [Suspect]
     Active Substance: LEVOTHYROXINE SODIUM
     Indication: Product used for unknown indication
     Dosage: 75 MICROGRAM, QD (DAILY)
     Dates: start: 202412, end: 20250128

REACTIONS (7)
  - Dyspnoea [Unknown]
  - Dizziness [Unknown]
  - Sleep disorder [Unknown]
  - Palpitations [Unknown]
  - Recalled product administered [Unknown]
  - Incorrect dose administered [Unknown]
  - Recalled product [Unknown]
